FAERS Safety Report 14997340 (Version 1)
Quarter: 2018Q2

REPORT INFORMATION
  Report Type: Spontaneous
  Country: US (occurrence: US)
  Receive Date: 20180611
  Receipt Date: 20180611
  Transmission Date: 20180711
  Serious: No
  Sender: FDA-Public Use
  Company Number: US-009507513-1805USA014774

PATIENT
  Age: 30 Year
  Sex: Female

DRUGS (6)
  1. PROGESTON [Concomitant]
     Active Substance: MEDROXYPROGESTERONE ACETATE
  2. DIAZEPAM. [Concomitant]
     Active Substance: DIAZEPAM
  3. FOLLISTIM AQ [Suspect]
     Active Substance: FOLLITROPIN
     Indication: INFERTILITY
     Dosage: 225 IU DAILY
     Route: 058
     Dates: start: 201802
  4. METHYLPREDNISOLONE. [Concomitant]
     Active Substance: METHYLPREDNISOLONE
  5. GANIRELIX ACETATE INJECTION [Suspect]
     Active Substance: GANIRELIX ACETATE
     Indication: INFERTILITY
     Dosage: 0.5 ML, DAILY
     Route: 058
     Dates: start: 201802
  6. ESTRADIOL. [Concomitant]
     Active Substance: ESTRADIOL

REACTIONS (2)
  - Musculoskeletal pain [Unknown]
  - Injection site pain [Unknown]

NARRATIVE: CASE EVENT DATE: 201805
